FAERS Safety Report 22045977 (Version 2)
Quarter: 2023Q1

REPORT INFORMATION
  Report Type: Spontaneous
  Country: JP (occurrence: JP)
  Receive Date: 20230228
  Receipt Date: 20230324
  Transmission Date: 20230418
  Serious: No
  Sender: FDA-Public Use
  Company Number: JP-MSD-2212JPN001234J

PATIENT
  Age: 8 Decade
  Sex: Female

DRUGS (5)
  1. KEYTRUDA [Suspect]
     Active Substance: PEMBROLIZUMAB
     Indication: Renal cell carcinoma
     Dosage: 200 MILLIGRAM, Q3W
     Route: 041
     Dates: start: 202211, end: 2022
  2. KEYTRUDA [Suspect]
     Active Substance: PEMBROLIZUMAB
     Dosage: UNK
     Route: 041
     Dates: start: 20230124
  3. LENVATINIB MESYLATE [Suspect]
     Active Substance: LENVATINIB MESYLATE
     Indication: Renal cell carcinoma
     Dosage: 20 MILLIGRAM, QD
     Route: 048
     Dates: start: 202211, end: 2022
  4. LENVATINIB MESYLATE [Suspect]
     Active Substance: LENVATINIB MESYLATE
     Dosage: 14 MILLIGRAM
     Route: 048
     Dates: start: 20230124, end: 202302
  5. LENVATINIB MESYLATE [Suspect]
     Active Substance: LENVATINIB MESYLATE
     Dosage: 10 MILLIGRAM
     Route: 048
     Dates: start: 202302

REACTIONS (3)
  - Thyroiditis [Recovering/Resolving]
  - Hypertension [Unknown]
  - Dehydration [Recovered/Resolved]

NARRATIVE: CASE EVENT DATE: 20220101
